FAERS Safety Report 4898460-5 (Version None)
Quarter: 2006Q1

REPORT INFORMATION
  Report Type: 
  Country: None (occurrence: None)
  Receive Date: 20060130
  Receipt Date: 20060118
  Transmission Date: 20060701
  Serious: Yes (Hospitalization)
  Sender: FDA-Public Use
  Company Number: 2006007414

PATIENT
  Age: 16 Year
  Sex: Male
  Weight: 95 kg

DRUGS (1)
  1. ZYRTEC [Suspect]
     Indication: DERMATITIS ATOPIC
     Dosage: 10 MG DAILY ORAL
     Route: 048
     Dates: start: 20040801, end: 20051223

REACTIONS (8)
  - ANTI-HBS ANTIBODY POSITIVE [None]
  - EPSTEIN-BARR VIRUS ANTIBODY POSITIVE [None]
  - HEPATIC STEATOSIS [None]
  - LIVER DISORDER [None]
  - PYREXIA [None]
  - SPLENOMEGALY [None]
  - UROBILIN URINE PRESENT [None]
  - WHITE BLOOD CELL COUNT DECREASED [None]
